FAERS Safety Report 9179817 (Version 1)
Quarter: 2012Q4

REPORT INFORMATION
  Report Type: 
  Country: IT (occurrence: IT)
  Receive Date: 20121029
  Receipt Date: 20121029
  Transmission Date: 20130627
  Serious: Yes (Other)
  Sender: FDA-Public Use
  Company Number: IT-B.I. PHARMACEUTICALS,INC./RIDGEFIELD-2012-EU-05397BY

PATIENT
  Age: 55 None
  Sex: Female

DRUGS (3)
  1. PRITOR PLUS [Suspect]
     Indication: HYPERTENSION
     Dosage: 80 mg
     Route: 048
     Dates: start: 20110301, end: 20110321
  2. ANTRA [Concomitant]
  3. MAXALT [Concomitant]

REACTIONS (3)
  - Anuria [Recovered/Resolved]
  - Tachycardia [Recovered/Resolved]
  - Restlessness [Recovered/Resolved]
